FAERS Safety Report 11117480 (Version 1)
Quarter: 2015Q2

REPORT INFORMATION
  Report Type: Spontaneous
  Country: BR (occurrence: BR)
  Receive Date: 20150516
  Receipt Date: 20150516
  Transmission Date: 20150821
  Serious: Yes (Other)
  Sender: FDA-Public Use
  Company Number: PHHY2013BR166821

PATIENT
  Age: 30 Year
  Sex: Female

DRUGS (1)
  1. OCTREOTIDE [Suspect]
     Active Substance: OCTREOTIDE
     Indication: PRODUCT USED FOR UNKNOWN INDICATION
     Dosage: UNK, EVERY 28 DAYS
     Route: 065

REACTIONS (4)
  - Steatorrhoea [Recovered/Resolved]
  - Carcinoid tumour pulmonary [Unknown]
  - Metastases to skin [Unknown]
  - Metastases to liver [Recovering/Resolving]
